FAERS Safety Report 9819318 (Version 1)
Quarter: 2014Q1

REPORT INFORMATION
  Report Type: Spontaneous
  Country: KR (occurrence: None)
  Receive Date: 20140113
  Receipt Date: 20140113
  Transmission Date: 20141002
  Serious: Yes (Other)
  Sender: FDA-Public Use
  Company Number: 2013KR010183

PATIENT
  Sex: 0

DRUGS (2)
  1. ALOXI [Suspect]
     Indication: PROPHYLAXIS OF NAUSEA AND VOMITING
     Route: 042
  2. SEVOFLURAN [Suspect]
     Indication: ANAESTHESIA

REACTIONS (2)
  - Arrhythmia [None]
  - Electrocardiogram QT prolonged [None]
